FAERS Safety Report 7320406-0 (Version None)
Quarter: 2011Q1

REPORT INFORMATION
  Report Type: 
  Country: None (occurrence: None)
  Receive Date: 20110228
  Receipt Date: 20110218
  Transmission Date: 20110831
  Serious: Yes (Hospitalization)
  Sender: FDA-Public Use
  Company Number: A0897681A

PATIENT
  Age: 72 Year
  Sex: Male
  Weight: 93.6 kg

DRUGS (1)
  1. AVANDAMET [Suspect]
     Route: 048
     Dates: start: 20060901, end: 20100301

REACTIONS (2)
  - ANGINA PECTORIS [None]
  - CORONARY ARTERY BYPASS [None]
